FAERS Safety Report 19977815 (Version 1)
Quarter: 2021Q4

REPORT INFORMATION
  Report Type: Spontaneous
  Country: US (occurrence: US)
  Receive Date: 20211020
  Receipt Date: 20211020
  Transmission Date: 20220303
  Serious: No
  Sender: FDA-Public Use
  Company Number: None

PATIENT
  Age: 7 Year
  Sex: Female

DRUGS (1)
  1. PALFORZIA [Suspect]
     Active Substance: PEANUT
     Indication: Food allergy
     Route: 049
     Dates: start: 20211007, end: 20211015

REACTIONS (4)
  - Abdominal discomfort [None]
  - Abdominal pain upper [None]
  - Ear pain [None]
  - Vomiting [None]

NARRATIVE: CASE EVENT DATE: 20211015
